FAERS Safety Report 14794605 (Version 1)
Quarter: 2018Q2

REPORT INFORMATION
  Report Type: Report from Study
  Country: US (occurrence: US)
  Receive Date: 20180423
  Receipt Date: 20180423
  Transmission Date: 20180711
  Serious: Yes (Hospitalization)
  Sender: FDA-Public Use
  Company Number: US-TEVA-2018-US-882801

PATIENT
  Age: 65 Year
  Sex: Male
  Weight: 142.9 kg

DRUGS (24)
  1. PF-06425090;PLACEBO [Suspect]
     Active Substance: INVESTIGATIONAL PRODUCT
     Route: 065
     Dates: start: 20170712, end: 20170712
  2. ALLOPURINOL. [Concomitant]
     Active Substance: ALLOPURINOL
     Dates: start: 2013
  3. IRON [Concomitant]
     Active Substance: IRON
     Dates: end: 2014
  4. OMEGA 3/OMEGA 6/OMEGA 9 TRIGLYCERIDES [Concomitant]
  5. LEVOTHYROXINE. [Concomitant]
     Active Substance: LEVOTHYROXINE
  6. MELATONIN [Concomitant]
     Active Substance: MELATONIN
  7. POTASSIUM CHLORIDE. [Concomitant]
     Active Substance: POTASSIUM CHLORIDE
  8. BENADRYL [Concomitant]
     Active Substance: DIPHENHYDRAMINE HYDROCHLORIDE
     Dates: start: 20180103, end: 20180104
  9. GABAPENTIN. [Concomitant]
     Active Substance: GABAPENTIN
     Dates: start: 2014
  10. ATIVAN [Concomitant]
     Active Substance: LORAZEPAM
     Dates: start: 20180103, end: 20180104
  11. WARFARIN [Suspect]
     Active Substance: WARFARIN
     Indication: ATRIAL FIBRILLATION
     Route: 048
     Dates: start: 2002
  12. METOPROLOL. [Concomitant]
     Active Substance: METOPROLOL
  13. HUMULIN R [Concomitant]
     Active Substance: INSULIN HUMAN
  14. LANTUS [Concomitant]
     Active Substance: INSULIN GLARGINE
  15. LIPITOR [Concomitant]
     Active Substance: ATORVASTATIN CALCIUM
  16. TRAZODONE [Concomitant]
     Active Substance: TRAZODONE HYDROCHLORIDE
  17. PF-06425090;PLACEBO [Suspect]
     Active Substance: INVESTIGATIONAL PRODUCT
     Route: 065
     Dates: start: 20170608, end: 20170608
  18. LISINOPRIL. [Concomitant]
     Active Substance: LISINOPRIL
  19. WARFARIN [Suspect]
     Active Substance: WARFARIN
     Route: 048
     Dates: start: 2002
  20. PF-06425090;PLACEBO [Suspect]
     Active Substance: INVESTIGATIONAL PRODUCT
     Indication: CLOSTRIDIUM DIFFICILE IMMUNISATION
     Route: 065
     Dates: start: 20171215, end: 20171215
  21. AMIODARONE [Concomitant]
     Active Substance: AMIODARONE
  22. ASPIRIN. [Concomitant]
     Active Substance: ASPIRIN
  23. VICTOZA [Concomitant]
     Active Substance: LIRAGLUTIDE
  24. LATANOPROST. [Concomitant]
     Active Substance: LATANOPROST

REACTIONS (2)
  - Toxicity to various agents [Recovered/Resolved]
  - Muscular weakness [Recovered/Resolved]

NARRATIVE: CASE EVENT DATE: 20180103
